FAERS Safety Report 5632299-8 (Version None)
Quarter: 2008Q1

REPORT INFORMATION
  Report Type: 
  Country: None (occurrence: None)
  Receive Date: 20080215
  Receipt Date: 20080131
  Transmission Date: 20080703
  Serious: Yes (Hospitalization)
  Sender: FDA-Public Use
  Company Number: 2008AL000570

PATIENT
  Age: 28 Year
  Sex: Male

DRUGS (4)
  1. CARBAMAZEPINE [Suspect]
     Dosage: 600 MG;QD;PO
  2. DIAZEPAM [Concomitant]
  3. CLONIDINE [Concomitant]
  4. ALCOHOL [Concomitant]

REACTIONS (26)
  - ALOPECIA EFFLUVIUM [None]
  - ARTHRALGIA [None]
  - ASTHENIA [None]
  - BLOOD BLISTER [None]
  - BLOOD CREATINE PHOSPHOKINASE INCREASED [None]
  - BLOOD PRESSURE DECREASED [None]
  - CONJUNCTIVITIS [None]
  - DISORIENTATION [None]
  - EOSINOPHILIA [None]
  - GENITAL ULCERATION [None]
  - HAEMORRHAGE [None]
  - HEPATIC ENZYME INCREASED [None]
  - HEPATOSPLENOMEGALY [None]
  - LEUKOCYTOSIS [None]
  - NIKOLSKY'S SIGN [None]
  - ONYCHOMADESIS [None]
  - ORAL MUCOSA EROSION [None]
  - PNEUMONIA [None]
  - PNEUMONIA HAEMOPHILUS [None]
  - PYREXIA [None]
  - RASH MACULAR [None]
  - RED BLOOD CELL SEDIMENTATION RATE INCREASED [None]
  - SCAB [None]
  - SKIN NECROSIS [None]
  - SOMNOLENCE [None]
  - TACHYCARDIA [None]
